FAERS Safety Report 23318942 (Version 2)
Quarter: 2023Q4

REPORT INFORMATION
  Report Type: Spontaneous
  Country: GB (occurrence: GB)
  Receive Date: 20231220
  Receipt Date: 20231222
  Transmission Date: 20240109
  Serious: Yes (Other)
  Sender: FDA-Public Use
  Company Number: GB-UCBSA-2023059129

PATIENT

DRUGS (1)
  1. CIMZIA [Suspect]
     Active Substance: CERTOLIZUMAB PEGOL
     Indication: Product used for unknown indication
     Dosage: UNK
     Dates: end: 20230402

REACTIONS (9)
  - Loss of consciousness [Recovered/Resolved]
  - Cataract [Unknown]
  - Cataract operation [Unknown]
  - Influenza [Unknown]
  - Pain [Unknown]
  - Asthenia [Unknown]
  - Ill-defined disorder [Unknown]
  - Chronic fatigue syndrome [Unknown]
  - SARS-CoV-2 test negative [Unknown]

NARRATIVE: CASE EVENT DATE: 20230101
